FAERS Safety Report 7603776-5 (Version None)
Quarter: 2011Q3

REPORT INFORMATION
  Report Type: 
  Country: None (occurrence: None)
  Receive Date: 20110712
  Receipt Date: 20110616
  Transmission Date: 20111222
  Serious: Yes (Congenital Anomaly)
  Sender: FDA-Public Use
  Company Number: US-GLAXOSMITHKLINE-A0923804A

PATIENT
  Sex: Female

DRUGS (2)
  1. PAXIL [Suspect]
     Indication: ANXIETY
     Dosage: 10MG PER DAY
     Route: 048
     Dates: start: 19991101
  2. PAXIL CR [Suspect]
     Indication: ANXIETY DISORDER
     Route: 064
     Dates: start: 20030530

REACTIONS (7)
  - BICUSPID AORTIC VALVE [None]
  - PARACHUTE MITRAL VALVE [None]
  - MATERNAL EXPOSURE DURING PREGNANCY [None]
  - CONGENITAL MITRAL VALVE STENOSIS [None]
  - ATRIAL SEPTAL DEFECT [None]
  - MITRAL VALVE INCOMPETENCE [None]
  - AORTIC VALVE STENOSIS [None]
